FAERS Safety Report 6345172-7 (Version None)
Quarter: 2009Q3

REPORT INFORMATION
  Report Type: 
  Country: None (occurrence: None)
  Receive Date: 20090909
  Receipt Date: 20090903
  Transmission Date: 20100115
  Serious: Yes (Other)
  Sender: FDA-Public Use
  Company Number: US-JNJFOC-20090902190

PATIENT
  Sex: Female
  Weight: 90.72 kg

DRUGS (16)
  1. DURAGESIC-100 [Suspect]
     Route: 062
     Dates: start: 20080723
  2. DURAGESIC-100 [Suspect]
     Route: 062
     Dates: start: 20080723
  3. DURAGESIC-100 [Suspect]
     Indication: BACK PAIN
     Route: 062
     Dates: start: 20080723
  4. COUMADIN [Concomitant]
     Indication: ANTICOAGULANT THERAPY
     Route: 048
  5. LEXAPRO [Concomitant]
     Route: 048
  6. DEPAKOTE [Concomitant]
     Indication: MIGRAINE
     Route: 048
  7. EFFEXOR XR [Concomitant]
     Indication: BIPOLAR DISORDER
     Route: 048
  8. SEROQUEL [Concomitant]
     Indication: FEELING OF RELAXATION
     Route: 048
  9. REQUIP [Concomitant]
     Indication: RESTLESS LEGS SYNDROME
     Route: 048
  10. AMBIEN [Concomitant]
     Indication: SLEEP DISORDER THERAPY
     Route: 048
  11. LORA TAB [Concomitant]
     Indication: PAIN
     Dosage: 7.5MG/500MG 1 DAILY AS NEEDED
     Route: 048
  12. THEOPHYLLINE [Concomitant]
     Indication: ASTHMA
     Route: 048
  13. ALLEGRA D 24 HOUR [Concomitant]
     Indication: DYSPNOEA
     Route: 048
  14. NEXIUM [Concomitant]
     Indication: GASTRIC DISORDER
     Route: 048
  15. ADVAIR HFA [Concomitant]
     Indication: DYSPNOEA
     Dosage: 250/50/DISC/250/50/INHALATION DAILY
     Route: 055
  16. TOPAMAX [Concomitant]
     Indication: MIGRAINE PROPHYLAXIS
     Route: 048

REACTIONS (8)
  - ABASIA [None]
  - APHASIA [None]
  - CONFUSIONAL STATE [None]
  - DISORIENTATION [None]
  - DIZZINESS [None]
  - FIBROMYALGIA [None]
  - OEDEMA PERIPHERAL [None]
  - SOMNOLENCE [None]
